FAERS Safety Report 5836716-X (Version None)
Quarter: 2008Q3

REPORT INFORMATION
  Report Type: 
  Country: None (occurrence: None)
  Receive Date: 20080807
  Receipt Date: 20080729
  Transmission Date: 20090109
  Serious: Yes (Other)
  Sender: FDA-Public Use
  Company Number: JP-AMGEN-US291129

PATIENT
  Age: 60 Year
  Sex: Female

DRUGS (4)
  1. ENBREL [Suspect]
     Indication: RHEUMATOID ARTHRITIS
     Route: 058
     Dates: start: 20080523
  2. HYPEN [Concomitant]
     Route: 048
  3. RHEUMATREX [Concomitant]
     Route: 048
  4. UNSPECIFIED STEROIDS [Concomitant]
     Route: 065

REACTIONS (1)
  - DEAFNESS [None]
